FAERS Safety Report 25526658 (Version 1)
Quarter: 2025Q3

REPORT INFORMATION
  Report Type: Spontaneous
  Country: TH (occurrence: TH)
  Receive Date: 20250707
  Receipt Date: 20250707
  Transmission Date: 20251021
  Serious: Yes (Other)
  Sender: PFIZER
  Company Number: TH-PFIZER INC-PV202500079638

PATIENT
  Age: 49 Year
  Sex: Female

DRUGS (1)
  1. LORLATINIB [Suspect]
     Active Substance: LORLATINIB
     Indication: Non-small cell lung cancer

REACTIONS (2)
  - Psychotic disorder [Unknown]
  - Hallucination [Unknown]
